FAERS Safety Report 8362542-6 (Version None)
Quarter: 2012Q2

REPORT INFORMATION
  Report Type: 
  Country: None (occurrence: None)
  Receive Date: 20120516
  Receipt Date: 20120504
  Transmission Date: 20120825
  Serious: Yes (Other)
  Sender: FDA-Public Use
  Company Number: US-BRISTOL-MYERS SQUIBB COMPANY-16491979

PATIENT
  Age: 55 Year
  Sex: Male
  Weight: 56 kg

DRUGS (3)
  1. CETUXIMAB [Suspect]
     Indication: NON-SMALL CELL LUNG CANCER
     Dosage: 250MG/M2;3247MG
     Route: 042
     Dates: start: 20100427, end: 20100427
  2. PACLITAXEL [Suspect]
     Indication: NON-SMALL CELL LUNG CANCER
     Dosage: 1020MG
     Route: 042
     Dates: start: 20100427
  3. CARBOPLATIN [Suspect]
     Indication: NON-SMALL CELL LUNG CANCER
     Dosage: 1DF=6AUC;2114MG
     Route: 042
     Dates: start: 20100427

REACTIONS (4)
  - OROPHARYNGEAL PAIN [None]
  - NEUTROPHIL COUNT DECREASED [None]
  - DERMATITIS ACNEIFORM [None]
  - LIPASE INCREASED [None]
